FAERS Safety Report 5572475-6 (Version None)
Quarter: 2007Q4

REPORT INFORMATION
  Report Type: 
  Country: None (occurrence: None)
  Receive Date: 20071219
  Receipt Date: 20071109
  Transmission Date: 20080405
  Serious: Yes (Other)
  Sender: FDA-Public Use
  Company Number: S07-DEN-06335-01

PATIENT
  Age: 62 Year
  Sex: Male

DRUGS (18)
  1. ESCITALOPRAM [Suspect]
     Indication: DEPRESSION
     Dosage: 5 MG QD PO
     Route: 048
     Dates: start: 20070911, end: 20070912
  2. PRIMPERAN TAB [Suspect]
     Dosage: 10 MG QD PO
     Route: 048
     Dates: start: 20070613, end: 20070913
  3. DIMITONE (CARVEDILOL) [Concomitant]
  4. AMLODIPIN (AMLODIPIN) [Concomitant]
  5. CARDOPAX (ISOSORBIDE DINITRATE) [Concomitant]
  6. FUROSEMIDE [Concomitant]
  7. HJERTEMAGNYL (ALBYL-ENTEROSOLUBILE) [Concomitant]
  8. RAMIPRIL [Concomitant]
  9. SIMVASTATIN [Concomitant]
  10. SYMBICORT [Concomitant]
  11. PANTOPRAZOLE SODIUM [Concomitant]
  12. PLAVIX [Concomitant]
  13. FEM-MONO RETARD (ISOSORBIDE MONONITRATE) [Concomitant]
  14. BRICANYL [Concomitant]
  15. SPIRIX (SPIRONOLACTONE) [Concomitant]
  16. TRAVATAN [Concomitant]
  17. NITROGLYCERIN [Concomitant]
  18. TRIATEC (PANADEINE) [Concomitant]

REACTIONS (5)
  - DRUG INTERACTION [None]
  - INSOMNIA [None]
  - MUSCLE SPASMS [None]
  - MYOCLONUS [None]
  - SOMNOLENCE [None]
